FAERS Safety Report 25929837 (Version 1)
Quarter: 2025Q4

REPORT INFORMATION
  Report Type: Spontaneous
  Country: US (occurrence: None)
  Receive Date: 20251015
  Receipt Date: 20251015
  Transmission Date: 20260118
  Serious: Yes (Life-Threatening, Hospitalization, Disabling, Other)
  Sender: FDA-CTU
  Company Number: None

PATIENT
  Age: 79 Year
  Sex: Female

DRUGS (12)
  1. HERCEPTIN [Suspect]
     Active Substance: TRASTUZUMAB
     Indication: Breast cancer
     Dosage: OTHER QUANTITY : 90 MIN. 1S DOSE; 30 MIN. 2ND DOSE;?FREQUENCY : EVERY THREE WEEKS;?
     Route: 042
     Dates: start: 20250701, end: 20250721
  2. SERTRALINE [Concomitant]
     Active Substance: SERTRALINE HYDROCHLORIDE
  3. OMEPRAZOLE [Concomitant]
     Active Substance: OMEPRAZOLE
  4. METOPROLOL [Concomitant]
     Active Substance: METOPROLOL
  5. LOSARTAN [Concomitant]
     Active Substance: LOSARTAN
  6. LORATADINE [Concomitant]
     Active Substance: LORATADINE
  7. GEMFIBROZIL [Concomitant]
     Active Substance: GEMFIBROZIL
  8. EZETIMIBE [Concomitant]
     Active Substance: EZETIMIBE
  9. WELCHOL [Concomitant]
     Active Substance: COLESEVELAM HYDROCHLORIDE
  10. APIXABAN [Concomitant]
     Active Substance: APIXABAN
  11. TYLENOL [Concomitant]
     Active Substance: ACETAMINOPHEN
  12. Hair, Skin + Nails PO [Concomitant]

REACTIONS (8)
  - Chills [None]
  - Headache [None]
  - Nausea [None]
  - Asthenia [None]
  - Sensory disturbance [None]
  - Pericardial effusion [None]
  - Pleural effusion [None]
  - Malaise [None]

NARRATIVE: CASE EVENT DATE: 20250701
